FAERS Safety Report 11349533 (Version 1)
Quarter: 2015Q3

REPORT INFORMATION
  Report Type: Spontaneous
  Country: US (occurrence: None)
  Receive Date: 20150702
  Receipt Date: 20150702
  Transmission Date: 20151125
  Serious: Yes (Other)
  Sender: FDA-Public Use
  Company Number: 2014ILOUS001312

PATIENT
  Age: 65 Year
  Sex: Female

DRUGS (4)
  1. FANAPT [Suspect]
     Active Substance: ILOPERIDONE
     Indication: SCHIZOPHRENIA
     Route: 048
  2. METFORMIN [Concomitant]
     Active Substance: METFORMIN HYDROCHLORIDE
  3. BENZEDRINE (AMFETAMINE SULFATE) [Concomitant]
  4. GLYBURIDE. [Concomitant]
     Active Substance: GLYBURIDE

REACTIONS (5)
  - Hallucination, auditory [None]
  - Blood glucose increased [None]
  - Back pain [None]
  - Heart rate increased [None]
  - Tic [None]
